FAERS Safety Report 25254460 (Version 1)
Quarter: 2025Q2

REPORT INFORMATION
  Report Type: Spontaneous
  Country: KR (occurrence: KR)
  Receive Date: 20250430
  Receipt Date: 20250430
  Transmission Date: 20250717
  Serious: Yes (Hospitalization, Other)
  Sender: Norvium Bioscience
  Company Number: KR-Norvium Bioscience LLC-080106

PATIENT
  Age: 46 Year
  Sex: Female
  Weight: 80 kg

DRUGS (4)
  1. FLUOXETINE [Interacting]
     Active Substance: FLUOXETINE HYDROCHLORIDE
     Indication: Depression
  2. PHENTERMINE [Interacting]
     Active Substance: PHENTERMINE
     Indication: Obesity
  3. TOPIRAMATE [Interacting]
     Active Substance: TOPIRAMATE
     Indication: Obesity
  4. CHLORTHALIDONE [Concomitant]
     Active Substance: CHLORTHALIDONE
     Indication: Obesity

REACTIONS (6)
  - Serotonin syndrome [Recovered/Resolved]
  - Rhabdomyolysis [Recovered/Resolved]
  - Renal failure [Recovered/Resolved]
  - Stress cardiomyopathy [Recovered/Resolved]
  - Drug interaction [Unknown]
  - Pulmonary embolism [Recovered/Resolved]
